FAERS Safety Report 4721711-4 (Version None)
Quarter: 2005Q3

REPORT INFORMATION
  Report Type: 
  Country: None (occurrence: None)
  Receive Date: 20050721
  Receipt Date: 20050310
  Transmission Date: 20060218
  Serious: No
  Sender: FDA-Public Use
  Company Number: US-BRISTOL-MYERS SQUIBB COMPANY-12892394

PATIENT
  Age: 76 Year
  Sex: Female
  Weight: 38 kg

DRUGS (7)
  1. COUMADIN [Suspect]
     Indication: MYOCARDIAL INFARCTION
     Route: 048
  2. SYNTHROID [Concomitant]
  3. LASIX [Concomitant]
  4. ALDACTONE [Concomitant]
  5. ZETIA [Concomitant]
  6. COREG [Concomitant]
  7. ZYRTEC [Concomitant]

REACTIONS (5)
  - EYE PAIN [None]
  - HEADACHE [None]
  - PAIN IN JAW [None]
  - RASH [None]
  - SWELLING FACE [None]
